FAERS Safety Report 17528094 (Version 1)
Quarter: 2020Q1

REPORT INFORMATION
  Report Type: Not Available
  Country: US (occurrence: US)
  Receive Date: 20200311
  Receipt Date: 20200311
  Transmission Date: 20200409
  Serious: No
  Sender: FDA-Public Use
  Company Number: US-NEUROCRINE BIOSCIENCES INC.-2020NBI00702

PATIENT
  Sex: Male

DRUGS (2)
  1. INGREZZA [Suspect]
     Active Substance: VALBENAZINE
     Route: 048
     Dates: start: 20190906
  2. INGREZZA [Suspect]
     Active Substance: VALBENAZINE
     Indication: MOVEMENT DISORDER
     Route: 048
     Dates: start: 20190805, end: 20190906

REACTIONS (3)
  - Weight increased [Unknown]
  - Off label use [Unknown]
  - Jaw disorder [Unknown]
